FAERS Safety Report 6976034-X (Version None)
Quarter: 2010Q3

REPORT INFORMATION
  Report Type: 
  Country: None (occurrence: None)
  Receive Date: 20100910
  Receipt Date: 20100901
  Transmission Date: 20110219
  Serious: Yes (Other)
  Sender: FDA-Public Use
  Company Number: CHPA2010JP14178

PATIENT
  Sex: Male

DRUGS (1)
  1. NICOTINELL COATED GUM FRUIT (NCH) [Suspect]
     Indication: SMOKING CESSATION THERAPY
     Dosage: UNK MG, ONCE/SINGLE
     Route: 048
     Dates: start: 20100831, end: 20100831

REACTIONS (5)
  - ANAPHYLACTOID REACTION [None]
  - DIZZINESS [None]
  - LOSS OF CONSCIOUSNESS [None]
  - OXYGEN SATURATION DECREASED [None]
  - PALPITATIONS [None]
